FAERS Safety Report 22202309 (Version 1)
Quarter: 2023Q2

REPORT INFORMATION
  Report Type: Spontaneous
  Country: US (occurrence: US)
  Receive Date: 20230412
  Receipt Date: 20230412
  Transmission Date: 20230722
  Serious: No
  Sender: FDA-Public Use
  Company Number: US-JNJFOC-20230368328

PATIENT
  Age: 63 Year
  Sex: Female
  Weight: 75.75 kg

DRUGS (4)
  1. ZYRTEC [Suspect]
     Active Substance: CETIRIZINE HYDROCHLORIDE
     Indication: Urticaria
     Route: 065
  2. COVID-19 VACCINE [Concomitant]
     Indication: COVID-19
     Dosage: FIFTH DOSE COVID SHOT
     Route: 065
     Dates: start: 20221031
  3. LEVOTHYROXINE [Concomitant]
     Active Substance: LEVOTHYROXINE
     Indication: Product used for unknown indication
     Dosage: 7 AND HALF PILLS A WEEK DOSAGE: 115, UNKNOWN UNITS
     Route: 065
  4. CLARITIN [Concomitant]
     Active Substance: LORATADINE
     Indication: Urticaria
     Route: 065

REACTIONS (2)
  - Off label use [Unknown]
  - Prescribed overdose [Unknown]
